FAERS Safety Report 7248932-3 (Version None)
Quarter: 2011Q1

REPORT INFORMATION
  Report Type: 
  Country: None (occurrence: None)
  Receive Date: 20110128
  Receipt Date: 20110118
  Transmission Date: 20110831
  Serious: Yes (Hospitalization)
  Sender: FDA-Public Use
  Company Number: FR-SANOFI-AVENTIS-2011SA003337

PATIENT
  Age: 89 Year
  Sex: Female

DRUGS (12)
  1. NEBIVOLOL [Suspect]
     Route: 048
  2. COSOPT [Concomitant]
  3. MULTI-VITAMINS [Concomitant]
  4. REFRESH [Concomitant]
  5. TRIMETAZIDINE HYDROCHLORIDE [Concomitant]
  6. RAMIPRIL [Suspect]
     Dates: end: 20101209
  7. SEROPLEX [Concomitant]
     Dates: start: 20101112, end: 20101206
  8. BETAHISTINE [Concomitant]
  9. ALBUMIN HUMAN ^MERIEUX^ [Suspect]
     Route: 042
     Dates: start: 20101208, end: 20101209
  10. CELLUVISC [Concomitant]
  11. LASIX [Suspect]
     Route: 048
  12. AMLOR [Suspect]
     Route: 048
     Dates: start: 20101118, end: 20101207

REACTIONS (2)
  - VASCULAR PURPURA [None]
  - OEDEMA PERIPHERAL [None]
